FAERS Safety Report 8112403-2 (Version None)
Quarter: 2012Q1

REPORT INFORMATION
  Report Type: 
  Country: None (occurrence: None)
  Receive Date: 20120203
  Receipt Date: 20120125
  Transmission Date: 20120608
  Serious: Yes (Hospitalization)
  Sender: FDA-Public Use
  Company Number: FR-PFIZER INC-2012020050

PATIENT
  Age: 86 Year
  Sex: Female

DRUGS (11)
  1. PREVISCAN [Concomitant]
     Dosage: UNK
  2. PERINDOPRIL ERBUMINE [Concomitant]
     Dosage: UNK
  3. ATORVASTATIN [Suspect]
     Dosage: 1 DF, 1X/DAY
     Route: 048
     Dates: start: 20111217, end: 20111220
  4. DRONEDARONE [Concomitant]
     Dosage: UNK
  5. GENTAMICIN [Suspect]
     Indication: LUNG DISORDER
     Dosage: 80 MG, 1X/DAY
     Route: 042
     Dates: start: 20111216, end: 20111218
  6. CEFTRIAXONE SODIUM [Suspect]
     Indication: LUNG DISORDER
     Dosage: UNK
     Route: 042
     Dates: start: 20111213, end: 20111220
  7. ROVAMYCINE [Suspect]
     Indication: LUNG DISORDER
     Dosage: 1.5 MUI EVERY THREE DAYS
     Route: 042
     Dates: start: 20111213, end: 20111220
  8. LERCANIDIPINE [Concomitant]
     Dosage: UNK
  9. SOTALOL [Concomitant]
     Dosage: UNK
  10. SIMVASTATIN [Concomitant]
     Dosage: UNK
  11. DIAMICRON [Concomitant]
     Dosage: UNK

REACTIONS (4)
  - SHOCK HAEMORRHAGIC [None]
  - CYTOLYTIC HEPATITIS [None]
  - RENAL FAILURE [None]
  - HAEMATOMA [None]
